FAERS Safety Report 7386857-3 (Version None)
Quarter: 2011Q1

REPORT INFORMATION
  Report Type: 
  Country: None (occurrence: None)
  Receive Date: 20110331
  Receipt Date: 20110322
  Transmission Date: 20110831
  Serious: Yes (Death, Life-Threatening, Other)
  Sender: FDA-Public Use
  Company Number: GB-TEVA-273655ISR

PATIENT
  Age: 52 Year
  Sex: Male
  Weight: 83.6 kg

DRUGS (4)
  1. TRAMADOL HCL [Suspect]
  2. PHENYTOIN [Suspect]
  3. THIORIDAZINE [Suspect]
  4. CARBAMAZEPINE [Suspect]

REACTIONS (7)
  - VERTIGO [None]
  - PULMONARY TUBERCULOSIS [None]
  - PULMONARY OEDEMA [None]
  - CIRCULATORY COLLAPSE [None]
  - ASPIRATION [None]
  - EPILEPSY [None]
  - DRUG LEVEL ABOVE THERAPEUTIC [None]
